FAERS Safety Report 5816106-6 (Version None)
Quarter: 2008Q3

REPORT INFORMATION
  Report Type: 
  Country: None (occurrence: None)
  Receive Date: 20080716
  Receipt Date: 20080716
  Transmission Date: 20090109
  Serious: No
  Sender: FDA-Public Use
  Company Number: None

PATIENT
  Sex: Female

DRUGS (1)
  1. TYSABRI [Suspect]
     Indication: MULTIPLE SCLEROSIS
     Dosage: 300MG EVERY 4 WEEKS IV
     Route: 042

REACTIONS (5)
  - ASTHENIA [None]
  - DIARRHOEA [None]
  - GASTRIC DISORDER [None]
  - PAIN [None]
  - SOMNOLENCE [None]
